FAERS Safety Report 11549401 (Version 1)
Quarter: 2015Q3

REPORT INFORMATION
  Report Type: Spontaneous
  Country: US (occurrence: US)
  Receive Date: 20150924
  Receipt Date: 20150924
  Transmission Date: 20151125
  Serious: No
  Sender: FDA-Public Use
  Company Number: US-INCYTE CORPORATION-2015IN002297

PATIENT
  Age: 67 Year
  Sex: Female
  Weight: 65.31 kg

DRUGS (10)
  1. JAKAFI [Suspect]
     Active Substance: RUXOLITINIB
     Indication: MYELOFIBROSIS
     Dosage: 20 MG, BID
     Route: 048
     Dates: start: 20150517, end: 201505
  2. JAKAFI [Suspect]
     Active Substance: RUXOLITINIB
     Dosage: 20 MG, QD
     Route: 048
     Dates: start: 201505, end: 201506
  3. CARDURA [Concomitant]
     Active Substance: DOXAZOSIN MESYLATE
  4. ANAGRELIDE [Concomitant]
     Active Substance: ANAGRELIDE
  5. FUROSEMIDE. [Concomitant]
     Active Substance: FUROSEMIDE
  6. METOPROLOL [Concomitant]
     Active Substance: METOPROLOL
  7. CELEBREX [Concomitant]
     Active Substance: CELECOXIB
  8. ESTRACE [Concomitant]
     Active Substance: ESTRADIOL
  9. FISH OIL [Concomitant]
     Active Substance: FISH OIL
  10. FLUTICASONE [Concomitant]
     Active Substance: FLUTICASONE\FLUTICASONE PROPIONATE

REACTIONS (1)
  - Diarrhoea [Recovered/Resolved]

NARRATIVE: CASE EVENT DATE: 20150519
